FAERS Safety Report 21709602 (Version 1)
Quarter: 2022Q4

REPORT INFORMATION
  Report Type: Report from Study
  Country: IR (occurrence: IR)
  Receive Date: 20221210
  Receipt Date: 20221210
  Transmission Date: 20230112
  Serious: Yes (Hospitalization, Other)
  Sender: FDA-Public Use
  Company Number: IR-Accord-290072

PATIENT
  Age: 28 Month

DRUGS (5)
  1. CARBOPLATIN [Suspect]
     Active Substance: CARBOPLATIN
     Indication: Retinoblastoma
     Dosage: TOTAL 3 INJECTION, 16 UG, IN 0.05 ML IN A BALANCED SALT SOLUTION
  2. ETOPOSIDE [Suspect]
     Active Substance: ETOPOSIDE
     Indication: Retinoblastoma
     Dosage: 5 MG/KG BODY WEIGHT ON DAYS 1 AND 2,GIVEN EVERY 4 WEEKS, FOR A TOTAL OF EIGHT CYCLES.
  3. MELPHALAN [Suspect]
     Active Substance: MELPHALAN
     Indication: Retinoblastoma
     Dosage: TOTAL 3 INJECTION, 30 UG IN 0.03 ML OF DILUENT
  4. VINCRISTINE [Suspect]
     Active Substance: VINCRISTINE
     Indication: Retinoblastoma
     Dosage: 0.05 MG/KG BODY WEIGHT ON DAY 1, GIVEN EVERY 4 WEEKS, FOR A TOTAL OF EIGHT CYCLES.
  5. CARBOPLATIN [Suspect]
     Active Substance: CARBOPLATIN
     Indication: Retinoblastoma
     Dosage: 18.6 MG/KG BODY WEIGHT ON DAY 1,GIVEN EVERY 4 WEEKS, FOR A TOTAL OF EIGHT CYCLES.

REACTIONS (1)
  - Hypotonia [Unknown]
